FAERS Safety Report 6223486-9 (Version None)
Quarter: 2009Q2

REPORT INFORMATION
  Report Type: 
  Country: None (occurrence: None)
  Receive Date: 20090609
  Receipt Date: 20090603
  Transmission Date: 20091009
  Serious: Yes (Hospitalization, Other)
  Sender: FDA-Public Use
  Company Number: US-WYE-H08778409

PATIENT
  Age: 67 Year
  Sex: Female
  Weight: 77.63 kg

DRUGS (9)
  1. LAPATINIB,           CONTROL FOR NERATINIB (LAPATINIB, CONTROL FOR NER [Suspect]
     Indication: BREAST CANCER
     Dosage: 1000 MG 1X PER 1 DAY, ORAL
     Route: 048
     Dates: start: 20090211, end: 20090326
  2. LAPATINIB,           CONTROL FOR NERATINIB (LAPATINIB, CONTROL FOR NER [Suspect]
     Indication: BREAST CANCER
     Dosage: 1000 MG 1X PER 1 DAY, ORAL
     Route: 048
     Dates: start: 20090415
  3. CAPECITABINE, CONTROL FOR NERATINIB (CAPECITABINE, CONTROL FOR NERATIN [Suspect]
     Indication: BREAST CANCER
     Dosage: 1950 MG 1X PER 1 DAY, ORAL; 1400 MG 1X PER 1 DAY, ORAL
     Route: 048
     Dates: start: 20090211, end: 20090326
  4. CAPECITABINE, CONTROL FOR NERATINIB (CAPECITABINE, CONTROL FOR NERATIN [Suspect]
     Indication: BREAST CANCER
     Dosage: 1950 MG 1X PER 1 DAY, ORAL; 1400 MG 1X PER 1 DAY, ORAL
     Route: 048
     Dates: start: 20090415
  5. FOSAMAX [Concomitant]
  6. LOTREL [Concomitant]
  7. VITAMIN D [Concomitant]
  8. ASCORBIC ACID [Concomitant]
  9. EPAFORTE BIOMARINE (FISH OIL) [Concomitant]

REACTIONS (9)
  - BLOOD ALBUMIN DECREASED [None]
  - BLOOD SODIUM DECREASED [None]
  - BLOOD SODIUM INCREASED [None]
  - CARBOHYDRATE ANTIGEN 15-3 INCREASED [None]
  - DEHYDRATION [None]
  - DIARRHOEA [None]
  - HYPOKALAEMIA [None]
  - PROTHROMBIN TIME SHORTENED [None]
  - RENAL FAILURE ACUTE [None]
